FAERS Safety Report 5026938-2 (Version None)
Quarter: 2006Q2

REPORT INFORMATION
  Report Type: 
  Country: None (occurrence: None)
  Receive Date: 20060609
  Receipt Date: 20060608
  Transmission Date: 20061013
  Serious: Yes (Death)
  Sender: FDA-Public Use
  Company Number: 2006-097DP

PATIENT
  Age: 10 Year
  Sex: Male

DRUGS (2)
  1. VALPROIC ACID [Suspect]
     Indication: DRUG RESISTANCE
  2. VALPROIC ACID [Suspect]
     Indication: EPILEPSY

REACTIONS (1)
  - HEPATIC FAILURE [None]
